FAERS Safety Report 6257216-1 (Version None)
Quarter: 2009Q3

REPORT INFORMATION
  Report Type: 
  Country: None (occurrence: None)
  Receive Date: 20090706
  Receipt Date: 20090623
  Transmission Date: 20100115
  Serious: Yes (Hospitalization, Other)
  Sender: FDA-Public Use
  Company Number: DE-ELI_LILLY_AND_COMPANY-DE200906006185

PATIENT
  Age: 30 Year
  Sex: Male

DRUGS (4)
  1. ZYPREXA [Suspect]
     Indication: DELUSION
     Dosage: 15 MG, DAILY (1/D)
     Route: 048
     Dates: start: 20070209, end: 20070209
  2. ZYPREXA [Suspect]
     Dosage: 5 MG, DAILY (1/D)
     Route: 048
     Dates: start: 20070210, end: 20070211
  3. ZYPREXA [Suspect]
     Dosage: 10 MG, DAILY (1/D)
     Route: 048
     Dates: start: 20070212, end: 20070219
  4. DIAZEPAM [Concomitant]

REACTIONS (4)
  - CYTOTOXIC OEDEMA [None]
  - HYPOVENTILATION [None]
  - MYALGIA [None]
  - PARKINSONISM [None]
